FAERS Safety Report 5413002-3 (Version None)
Quarter: 2007Q3

REPORT INFORMATION
  Report Type: 
  Country: None (occurrence: None)
  Receive Date: 20070813
  Receipt Date: 20070803
  Transmission Date: 20080115
  Serious: Yes (Death)
  Sender: FDA-Public Use
  Company Number: JP-PFIZER INC-2007052019

PATIENT
  Sex: Male
  Weight: 61 kg

DRUGS (16)
  1. ZYVOX [Suspect]
     Indication: SEPSIS
     Route: 042
     Dates: start: 20051214, end: 20051215
  2. CEFAZOLIN SODIUM [Concomitant]
     Route: 042
     Dates: start: 20051201, end: 20051209
  3. MEROPEN [Concomitant]
     Route: 042
  4. VANCOMYCIN [Concomitant]
     Route: 042
     Dates: start: 20051209, end: 20051213
  5. CIPROFLOXACIN [Concomitant]
     Route: 042
  6. NORADRENALINE [Concomitant]
     Route: 042
  7. DOBUTREX [Concomitant]
     Route: 042
  8. KETALAR [Concomitant]
     Route: 042
  9. ELASPOL [Concomitant]
     Route: 042
  10. FAMOTIDINE [Concomitant]
     Route: 042
  11. HUMULIN 70/30 [Concomitant]
     Route: 042
  12. MEYLON [Concomitant]
     Route: 042
  13. ALBUMIN (HUMAN) [Concomitant]
     Route: 042
  14. ANTITHROMBIN III [Concomitant]
     Route: 042
     Dates: start: 20051201
  15. FUTHAN [Concomitant]
     Route: 042
  16. HEPARIN [Concomitant]
     Route: 042

REACTIONS (1)
  - HEPATIC FAILURE [None]
